FAERS Safety Report 7990847-7 (Version None)
Quarter: 2011Q4

REPORT INFORMATION
  Report Type: 
  Country: None (occurrence: None)
  Receive Date: 20111219
  Receipt Date: 20111209
  Transmission Date: 20120403
  Serious: Yes (Other)
  Sender: FDA-Public Use
  Company Number: US-ACTELION-A-US2011-45594

PATIENT

DRUGS (31)
  1. REVATIO [Concomitant]
  2. PRAVASTATIN [Concomitant]
  3. ZOCOR [Concomitant]
  4. ALLOPURINOL [Concomitant]
  5. VITAMIN B-12 [Concomitant]
  6. TRACLEER [Suspect]
     Indication: PULMONARY ARTERIAL HYPERTENSION
     Dosage: 125 MG, BID
     Route: 048
     Dates: start: 20100929
  7. ASPIRIN [Concomitant]
  8. OXYGEN [Concomitant]
  9. BETHANECHOL [Concomitant]
  10. PRADAXA [Concomitant]
  11. FLOMAX [Concomitant]
  12. APIDRA [Concomitant]
  13. THEOPHYLLINE [Concomitant]
  14. CALCIUM [Concomitant]
  15. PLAVIX [Concomitant]
  16. FLEXERIL [Concomitant]
  17. REGLAN [Concomitant]
  18. GLUCOSAMINE [Concomitant]
  19. ADVAIR DISKUS 100/50 [Concomitant]
  20. LANTUS [Concomitant]
  21. VICODIN [Concomitant]
  22. ALDACTAZIDE [Concomitant]
  23. DUONEB [Concomitant]
  24. FISH OIL [Concomitant]
  25. NEXIUM [Concomitant]
  26. ALLEGRA [Concomitant]
  27. VITAMIN D [Concomitant]
  28. JANUMET [Concomitant]
  29. COMBIVENT [Concomitant]
  30. PROVEX CV [Concomitant]
  31. LASIX [Concomitant]

REACTIONS (7)
  - ASTHENIA [None]
  - GASTRIC CANCER [None]
  - LYMPHOMA [None]
  - DIZZINESS [None]
  - ANAEMIA [None]
  - BREAST MASS [None]
  - CHEMOTHERAPY [None]
